FAERS Safety Report 9023829 (Version 2)
Quarter: 2013Q1

REPORT INFORMATION
  Report Type: Report from Study
  Country: BR (occurrence: BR)
  Receive Date: 20130121
  Receipt Date: 20130316
  Transmission Date: 20140127
  Serious: Yes (Other)
  Sender: FDA-Public Use
  Company Number: BR-US-EMD SERONO, INC.-7186355

PATIENT
  Sex: Female

DRUGS (6)
  1. REBIF [Suspect]
     Indication: RELAPSING-REMITTING MULTIPLE SCLEROSIS
     Dates: start: 20120203
  2. PAMELOR [Concomitant]
     Indication: SLEEP DISORDER
  3. PROPRANOLOL [Concomitant]
     Indication: PRODUCT USED FOR UNKNOWN INDICATION
  4. DIANE [Concomitant]
     Indication: MENSTRUAL DISORDER
  5. RIVOTRIL [Concomitant]
     Indication: SLEEP DISORDER
  6. FLUOXETINE [Concomitant]
     Indication: PRODUCT USED FOR UNKNOWN INDICATION

REACTIONS (3)
  - Labyrinthitis [Recovered/Resolved]
  - Paraesthesia [Recovered/Resolved]
  - Insomnia [Recovered/Resolved]
